FAERS Safety Report 9444494 (Version 1)
Quarter: 2013Q3

REPORT INFORMATION
  Report Type: Spontaneous
  Country: AT (occurrence: AT)
  Receive Date: 20130807
  Receipt Date: 20130807
  Transmission Date: 20140515
  Serious: Yes (Hospitalization)
  Sender: FDA-Public Use
  Company Number: AT-ALEXION PHARMACEUTICALS INC.-A201301794

PATIENT
  Age: 45 Year
  Sex: Male

DRUGS (2)
  1. SOLIRIS 300MG [Suspect]
     Indication: PAROXYSMAL NOCTURNAL HAEMOGLOBINURIA
     Dosage: 600 MG, QW
     Route: 042
     Dates: start: 20130612, end: 20130710
  2. SOLIRIS 300MG [Suspect]
     Dosage: 900 MG, Q2W
     Route: 042
     Dates: start: 20130712

REACTIONS (2)
  - Fatigue [Unknown]
  - Dizziness [Unknown]
